FAERS Safety Report 6043358-2 (Version None)
Quarter: 2009Q1

REPORT INFORMATION
  Report Type: 
  Country: None (occurrence: None)
  Receive Date: 20090115
  Receipt Date: 20090106
  Transmission Date: 20090719
  Serious: Yes (Hospitalization)
  Sender: FDA-Public Use
  Company Number: IPS_01360_2008

PATIENT
  Sex: Male

DRUGS (1)
  1. APOKYN [Suspect]
     Indication: DRUG USE FOR UNKNOWN INDICATION
     Dosage: (0.3 ML 1X/4 DAYS SUBCUTANEOUS)
     Route: 058
     Dates: start: 20081118

REACTIONS (4)
  - BLOOD PRESSURE INCREASED [None]
  - NIGHT SWEATS [None]
  - OEDEMA PERIPHERAL [None]
  - THIRST [None]
